FAERS Safety Report 16939546 (Version 1)
Quarter: 2019Q4

REPORT INFORMATION
  Report Type: Spontaneous
  Country: SE (occurrence: SE)
  Receive Date: 20191021
  Receipt Date: 20191021
  Transmission Date: 20200122
  Serious: Yes (Hospitalization, Other)
  Sender: FDA-Public Use
  Company Number: SE-TEVA-2019-SE-1123459

PATIENT
  Age: 76 Year
  Sex: Female

DRUGS (11)
  1. CALCICHEW-D3 [Concomitant]
     Active Substance: CALCIUM\CHOLECALCIFEROL
  2. AZOPT [Concomitant]
     Active Substance: BRINZOLAMIDE
  3. ZOMETA [Suspect]
     Active Substance: ZOLEDRONIC ACID
     Indication: METASTASES TO BONE
     Dosage: 4MG / 100ML INFUSION SOLUTION
     Route: 042
  4. PULMICORT TURBUHALER [Concomitant]
     Active Substance: BUDESONIDE
  5. OMEPRAZOLE. [Concomitant]
     Active Substance: OMEPRAZOLE
  6. AMLODIPINE [Concomitant]
     Active Substance: AMLODIPINE BESYLATE
  7. XALATAN [Concomitant]
     Active Substance: LATANOPROST
  8. ZOLEDRONSYRA (ZOLEDRONIC ACID) [Suspect]
     Active Substance: ZOLEDRONIC ACID
     Indication: BREAST CANCER METASTATIC
     Route: 042
     Dates: start: 20160215, end: 20190110
  9. ZERLINDA [Suspect]
     Active Substance: ZOLEDRONIC ACID
     Indication: METASTASES TO BONE
     Dosage: 4MG / 100ML INFUSION SOLUTION
     Route: 042
  10. BONDRONAT [Suspect]
     Active Substance: IBANDRONATE SODIUM
     Dosage: 50 MG, 1DAY
     Route: 065
     Dates: start: 2007, end: 20160215
  11. EXEMESTAN [Concomitant]
     Active Substance: EXEMESTANE

REACTIONS (2)
  - Femur fracture [Recovered/Resolved with Sequelae]
  - Hip fracture [Unknown]

NARRATIVE: CASE EVENT DATE: 2019
